FAERS Safety Report 23189609 (Version 4)
Quarter: 2023Q4

REPORT INFORMATION
  Report Type: Spontaneous
  Country: US (occurrence: US)
  Receive Date: 20231116
  Receipt Date: 20231225
  Transmission Date: 20240110
  Serious: Yes (Life-Threatening, Hospitalization, Other)
  Sender: FDA-Public Use
  Company Number: US-MLMSERVICE-20231024-4619093-1

PATIENT
  Age: 68 Year
  Sex: Male

DRUGS (6)
  1. BUPIVACAINE HYDROCHLORIDE [Suspect]
     Active Substance: BUPIVACAINE HYDROCHLORIDE\BUPIVACAINE HYDROCHLORIDE ANHYDROUS
     Indication: Local anaesthesia
     Dosage: 20 MILLILITER
     Route: 065
  2. BUPIVACAINE HYDROCHLORIDE [Suspect]
     Active Substance: BUPIVACAINE HYDROCHLORIDE\BUPIVACAINE HYDROCHLORIDE ANHYDROUS
     Indication: Transversus abdominis plane block
  3. EXPAREL [Suspect]
     Active Substance: BUPIVACAINE
     Indication: Local anaesthesia
     Dosage: 20 MILLILITER IN TOTAL (LIPOSOMAL)
     Route: 065
  4. EXPAREL [Suspect]
     Active Substance: BUPIVACAINE
     Indication: Transversus abdominis plane block
  5. BUPIVACAINE HYDROCHLORIDE;EPINEPHRINE [Concomitant]
     Indication: Local anaesthesia
     Dosage: 30 MILLILITER IN TOTAL ((0.5% BUPIVACAINE WITH EPINEPHRINE 1:200,000)
     Route: 065
  6. BUPIVACAINE HYDROCHLORIDE;EPINEPHRINE [Concomitant]
     Indication: Transversus abdominis plane block

REACTIONS (5)
  - Cardiac arrest [Recovered/Resolved]
  - Local anaesthetic systemic toxicity [Recovered/Resolved]
  - Pulseless electrical activity [Recovered/Resolved]
  - Ventricular tachycardia [Recovered/Resolved]
  - Ventricular fibrillation [Recovered/Resolved]
